FAERS Safety Report 5369198-5 (Version None)
Quarter: 2007Q2

REPORT INFORMATION
  Report Type: 
  Country: None (occurrence: None)
  Receive Date: 20070625
  Receipt Date: 20070615
  Transmission Date: 20071010
  Serious: Yes (Life-Threatening)
  Sender: FDA-Public Use
  Company Number: FR-ROCHE-503045

PATIENT
  Sex: Female
  Weight: 3.2 kg

DRUGS (1)
  1. VALIUM [Suspect]
     Indication: NECK PAIN
     Dates: start: 20060514, end: 20060628

REACTIONS (2)
  - AORTIC STENOSIS [None]
  - VENTRICULAR SEPTAL DEFECT [None]
